FAERS Safety Report 4947938-4 (Version None)
Quarter: 2006Q1

REPORT INFORMATION
  Report Type: 
  Country: None (occurrence: None)
  Receive Date: 20060308
  Receipt Date: 20060222
  Transmission Date: 20060701
  Serious: Yes (Other)
  Sender: FDA-Public Use
  Company Number: 25162

PATIENT

DRUGS (2)
  1. DIHYDROERGOTAMINE MESYLATE [Suspect]
  2. KETORALAC TROMETHAMINE [Suspect]

REACTIONS (1)
  - MEDICATION ERROR [None]
